FAERS Safety Report 18911563 (Version 2)
Quarter: 2021Q1

REPORT INFORMATION
  Report Type: Other
  Country: US (occurrence: US)
  Receive Date: 20210218
  Receipt Date: 20210302
  Transmission Date: 20210420
  Serious: Yes (Other)
  Sender: FDA-Public Use
  Company Number: US-ROCHE-2770893

PATIENT
  Sex: Female

DRUGS (2)
  1. CELLCEPT [Suspect]
     Active Substance: MYCOPHENOLATE MOFETIL\MYCOPHENOLATE MOFETIL HYDROCHLORIDE
     Indication: LUPUS NEPHRITIS
     Route: 048
  2. CELLCEPT [Suspect]
     Active Substance: MYCOPHENOLATE MOFETIL\MYCOPHENOLATE MOFETIL HYDROCHLORIDE
     Indication: SYSTEMIC LUPUS ERYTHEMATOSUS

REACTIONS (9)
  - Memory impairment [Unknown]
  - Diarrhoea [Recovered/Resolved]
  - Off label use [Unknown]
  - Visual impairment [Unknown]
  - Disability [Unknown]
  - Muscular weakness [Unknown]
  - Arthralgia [Unknown]
  - Cerebrovascular accident [Not Recovered/Not Resolved]
  - Intentional product use issue [Unknown]
